FAERS Safety Report 17916116 (Version 1)
Quarter: 2020Q2

REPORT INFORMATION
  Report Type: Other
  Country: CA (occurrence: CA)
  Receive Date: 20200619
  Receipt Date: 20200619
  Transmission Date: 20200714
  Serious: Yes (Death, Other)
  Sender: FDA-Public Use
  Company Number: CA-APOTEX-2020AP012097

PATIENT
  Age: 51 Year
  Sex: Male

DRUGS (8)
  1. CYCLOSPORINE. [Suspect]
     Active Substance: CYCLOSPORINE
     Indication: IMMUNOSUPPRESSION
     Dosage: UNK
     Route: 065
  2. METHYLPREDNISOLONE. [Suspect]
     Active Substance: METHYLPREDNISOLONE
     Indication: IMMUNOSUPPRESSION
     Dosage: 1 MG/KG, TOTAL
     Route: 065
  3. GANCICLOVIR. [Suspect]
     Active Substance: GANCICLOVIR
     Indication: CYTOMEGALOVIRUS SYNDROME
     Dosage: 5 MG/KG, BID
     Route: 042
  4. MYCOPHENOLIC ACID. [Suspect]
     Active Substance: MYCOPHENOLIC ACID
     Indication: IMMUNOSUPPRESSION
     Dosage: 1080 MG, QD
     Route: 065
  5. TACROLIMUS. [Suspect]
     Active Substance: TACROLIMUS
     Indication: IMMUNOSUPPRESSION
     Dosage: UNK
     Route: 065
  6. FOSCARNET SODIUM. [Suspect]
     Active Substance: FOSCARNET SODIUM
     Indication: CYTOMEGALOVIRUS SYNDROME
     Dosage: 180 MG/KG, QD
     Route: 065
  7. PREVYMIS [Suspect]
     Active Substance: LETERMOVIR
     Indication: CYTOMEGALOVIRUS SYNDROME
     Dosage: 240 MG, QD
     Route: 042
  8. PREDNISONE. [Suspect]
     Active Substance: PREDNISONE
     Indication: IMMUNOSUPPRESSION
     Dosage: 15 MG, QD
     Route: 065

REACTIONS (5)
  - Hyperkalaemia [Fatal]
  - Pneumonia pseudomonal [Fatal]
  - Acute kidney injury [Fatal]
  - Dyspnoea [Fatal]
  - Bacterial sepsis [Fatal]
